FAERS Safety Report 10176511 (Version 3)
Quarter: 2014Q3

REPORT INFORMATION
  Report Type: Spontaneous
  Country: FR (occurrence: None)
  Receive Date: 20140514
  Receipt Date: 20140701
  Transmission Date: 20150326
  Serious: Yes (Hospitalization)
  Sender: FDA-Public Use
  Company Number: 2014-FR-005875

PATIENT
  Age: 72 Year
  Sex: Male

DRUGS (21)
  1. BACLOFEN (BACLOFEN) INJECTION [Suspect]
     Active Substance: BACLOFEN
     Indication: PAIN
     Route: 037
  2. MACROGOL 4000 DCI (MACROGOL 4000) [Concomitant]
  3. PRIALT [Suspect]
     Active Substance: ZICONOTIDE ACETATE
     Indication: PAIN
     Route: 037
     Dates: start: 2013
  4. PLAVIX [Concomitant]
     Active Substance: CLOPIDOGREL BISULFATE
  5. PRETERAX (INDAPAMIDE, PERINDOPRIL ERBUMINE) [Concomitant]
  6. LAROXYL (AMITRIPTYLINE HYDORCHLORIDE) [Concomitant]
  7. HALDOL (HALOPERIDOL) [Concomitant]
  8. BACLOFEN (BACLOFEN) INJECTION [Suspect]
     Active Substance: BACLOFEN
     Indication: CEREBROVASCULAR ACCIDENT
     Route: 037
  9. NEURONTIN [Concomitant]
     Active Substance: GABAPENTIN
  10. EUPANTOL [Concomitant]
     Active Substance: PANTOPRAZOLE SODIUM
  11. MORPHINE SULFATE (MORPHINE SULFATE) INJECTION [Suspect]
     Active Substance: MORPHINE SULFATE
     Indication: PAIN
     Route: 037
  12. EZETROL (EZETIMIBE) [Concomitant]
     Active Substance: EZETIMIBE
  13. XANAX [Concomitant]
     Active Substance: ALPRAZOLAM
  14. SEROPLEX (ESCITALOPRAM OXALATE) [Concomitant]
     Active Substance: ESCITALOPRAM OXALATE
  15. PRIALT [Suspect]
     Active Substance: ZICONOTIDE ACETATE
     Indication: CEREBROVASCULAR ACCIDENT
     Route: 037
     Dates: start: 2013
  16. MORPHINE SULFATE (MORPHINE SULFATE) INJECTION [Suspect]
     Active Substance: MORPHINE SULFATE
     Indication: CEREBROVASCULAR ACCIDENT
     Route: 037
  17. OXYCONTIN [Concomitant]
     Active Substance: OXYCODONE HYDROCHLORIDE
  18. OXYNORMORO (OXYCODONE HYDROCHLORIDE) [Concomitant]
  19. ACURPAN (NEFOPAM HYDROCHLORIDE) [Concomitant]
  20. STAGID (METFORMIN EMBONATE) [Concomitant]
     Active Substance: METFORMIN PAMOATE
  21. STILNOX (ZOLPIDEM TARTRATE) [Concomitant]

REACTIONS (6)
  - Apraxia [None]
  - Fall [None]
  - Swelling face [None]
  - Confusional state [None]
  - Disorientation [None]
  - Slow speech [None]

NARRATIVE: CASE EVENT DATE: 201404
